FAERS Safety Report 14261068 (Version 1)
Quarter: 2017Q4

REPORT INFORMATION
  Report Type: Spontaneous
  Country: US (occurrence: US)
  Receive Date: 20171207
  Receipt Date: 20171207
  Transmission Date: 20180321
  Serious: Yes (Life-Threatening, Hospitalization, Disabling)
  Sender: FDA-Public Use
  Company Number: None

PATIENT
  Age: 25 Year
  Sex: Male
  Weight: 82 kg

DRUGS (4)
  1. CLONAZEPAM. [Concomitant]
     Active Substance: CLONAZEPAM
  2. OLANZEPINE [Suspect]
     Active Substance: OLANZAPINE
     Indication: SCHIZOPHRENIA
     Dosage: ?          OTHER FREQUENCY:7.5 MG AM 22.5 QPM;?
     Route: 048
  3. COGENTIN [Concomitant]
     Active Substance: BENZTROPINE MESYLATE
  4. DEPAKATE [Concomitant]

REACTIONS (11)
  - Dehydration [None]
  - Urinary incontinence [None]
  - Nausea [None]
  - Diabetic ketoacidotic hyperglycaemic coma [None]
  - Encephalopathy [None]
  - Pyrexia [None]
  - Mental status changes [None]
  - Acute kidney injury [None]
  - Respiratory distress [None]
  - Vomiting [None]
  - Tachycardia [None]

NARRATIVE: CASE EVENT DATE: 20171205
